FAERS Safety Report 18606387 (Version 2)
Quarter: 2021Q1

REPORT INFORMATION
  Report Type: Spontaneous
  Country: US (occurrence: US)
  Receive Date: 20201211
  Receipt Date: 20210125
  Transmission Date: 20210419
  Serious: No
  Sender: FDA-Public Use
  Company Number: US-GLAXOSMITHKLINE-US2020238772

PATIENT
  Sex: Female

DRUGS (1)
  1. BREO ELLIPTA [Suspect]
     Active Substance: FLUTICASONE FUROATE\VILANTEROL TRIFENATATE
     Indication: ASTHMA
     Dosage: UNK, AS NEEDED (200/25 MCG)
     Route: 065
     Dates: start: 20201003

REACTIONS (6)
  - Underdose [Unknown]
  - Off label use [Unknown]
  - Wrong technique in device usage process [Unknown]
  - Product complaint [Unknown]
  - Expired product administered [Unknown]
  - Product dose omission issue [Unknown]
